FAERS Safety Report 15936857 (Version 1)
Quarter: 2019Q1

REPORT INFORMATION
  Report Type: Spontaneous
  Country: US (occurrence: US)
  Receive Date: 20190208
  Receipt Date: 20190208
  Transmission Date: 20190417
  Serious: Yes (Disabling)
  Sender: FDA-Public Use
  Company Number: None

PATIENT
  Age: 59 Year
  Sex: Male
  Weight: 101.25 kg

DRUGS (6)
  1. POTASSIUM [Concomitant]
     Active Substance: POTASSIUM
  2. METOPROLOL 25 MG [Concomitant]
     Active Substance: METOPROLOL
  3. MAGNESIUM [Concomitant]
     Active Substance: MAGNESIUM
  4. CIPROFLOXACIN. [Suspect]
     Active Substance: CIPROFLOXACIN
     Indication: INFECTION
     Dosage: ?          QUANTITY:20 TABLET(S);?
     Route: 048
     Dates: start: 20181015, end: 20181025
  5. LOSARTAN 25 MG [Concomitant]
     Active Substance: LOSARTAN
  6. MULTI VITAMIN [Concomitant]
     Active Substance: VITAMINS

REACTIONS (15)
  - Tendon pain [None]
  - Arthralgia [None]
  - Dyschezia [None]
  - Insomnia [None]
  - Eye irritation [None]
  - Nasal discomfort [None]
  - Anorectal discomfort [None]
  - Hypoaesthesia [None]
  - Muscle contractions involuntary [None]
  - Pain [None]
  - Pain in extremity [None]
  - Burning sensation [None]
  - Paraesthesia [None]
  - Renal pain [None]
  - Myalgia [None]

NARRATIVE: CASE EVENT DATE: 20181027
